FAERS Safety Report 16410051 (Version 3)
Quarter: 2019Q4

REPORT INFORMATION
  Report Type: Spontaneous
  Country: BR (occurrence: BR)
  Receive Date: 20190610
  Receipt Date: 20191203
  Transmission Date: 20200122
  Serious: Yes (Other)
  Sender: FDA-Public Use
  Company Number: BR-JNJFOC-20190606113

PATIENT
  Sex: Female
  Weight: 72 kg

DRUGS (3)
  1. TOPAMAX [Suspect]
     Active Substance: TOPIRAMATE
     Indication: MIGRAINE
     Route: 048
     Dates: start: 201803
  2. LEVOTHYROXINE. [Concomitant]
     Active Substance: LEVOTHYROXINE
     Route: 065
  3. SUMAXPRO [Concomitant]
     Indication: PAIN
     Route: 065

REACTIONS (5)
  - Suspected counterfeit product [Unknown]
  - Product container seal issue [Unknown]
  - Vomiting [Unknown]
  - Thyroid cancer [Unknown]
  - Migraine [Unknown]
